FAERS Safety Report 8114163-8 (Version None)
Quarter: 2012Q1

REPORT INFORMATION
  Report Type: 
  Country: None (occurrence: None)
  Receive Date: 20120205
  Receipt Date: 20120130
  Transmission Date: 20120608
  Serious: Yes (Hospitalization)
  Sender: FDA-Public Use
  Company Number: PHHY2012JP008460

PATIENT
  Age: 38 Year
  Sex: Female

DRUGS (1)
  1. BROMOCRIPTINE MESYLATE [Suspect]
     Dates: start: 20100401

REACTIONS (2)
  - MATERNAL EXPOSURE DURING PREGNANCY [None]
  - PERIPARTUM CARDIOMYOPATHY [None]
